FAERS Safety Report 24918635 (Version 2)
Quarter: 2025Q1

REPORT INFORMATION
  Report Type: Report from Study
  Country: US (occurrence: US)
  Receive Date: 20250203
  Receipt Date: 20250205
  Transmission Date: 20250408
  Serious: Yes (Other)
  Sender: ABBVIE
  Company Number: US-ABBVIE-6113019

PATIENT
  Age: 71 Year
  Sex: Male

DRUGS (2)
  1. VENCLEXTA [Suspect]
     Active Substance: VENETOCLAX
     Indication: Product used for unknown indication
     Dosage: TAKE 8 TABLET(S) BY MOUTH (400MG) EVERY DAY AS DIRECTED
     Route: 048
  2. GAZYVA [Suspect]
     Active Substance: OBINUTUZUMAB
     Indication: Mantle cell lymphoma
     Route: 042

REACTIONS (2)
  - Neoplasm malignant [Unknown]
  - Off label use [Unknown]
